FAERS Safety Report 9262449 (Version 1)
Quarter: 2013Q2

REPORT INFORMATION
  Report Type: Spontaneous
  Country: PL (occurrence: PL)
  Receive Date: 20130430
  Receipt Date: 20130430
  Transmission Date: 20140414
  Serious: Yes (Hospitalization, Other)
  Sender: FDA-Public Use
  Company Number: PL-RANBAXY-2013RR-67062

PATIENT
  Age: 61 Year
  Sex: Female

DRUGS (9)
  1. RISPERIDONE [Suspect]
     Indication: BIPOLAR DISORDER
     Dosage: 3 MG TO 6 MG DAILY
     Route: 065
  2. RISPERIDONE [Suspect]
     Indication: BIPOLAR DISORDER
     Dosage: 5 MG
     Route: 065
  3. CLOZAPINE [Concomitant]
     Indication: BIPOLAR DISORDER
     Dosage: 25 MG DAILY
     Route: 065
  4. QUETIAPINE [Concomitant]
     Indication: BIPOLAR DISORDER
     Dosage: 300 MG DAILY
     Route: 065
  5. VALPROIC ACID [Concomitant]
     Indication: BIPOLAR DISORDER
     Dosage: 1500 MG DAILY
     Route: 065
  6. ESTAZOLAM [Concomitant]
     Indication: BIPOLAR DISORDER
     Dosage: SOMETIMES
     Route: 065
  7. ZOLPIDEM [Concomitant]
     Indication: BIPOLAR DISORDER
     Dosage: SOMETIMES
     Route: 065
  8. QUETIAPINE [Concomitant]
     Indication: BIPOLAR DISORDER
     Dosage: UP TO 700 MG
     Route: 065
  9. CLOZAPINE [Concomitant]
     Indication: BIPOLAR DISORDER
     Dosage: 100 MG DAILY
     Route: 065

REACTIONS (1)
  - Rabbit syndrome [Recovering/Resolving]
